FAERS Safety Report 8340621-7 (Version None)
Quarter: 2012Q2

REPORT INFORMATION
  Report Type: 
  Country: None (occurrence: None)
  Receive Date: 20120507
  Receipt Date: 20120426
  Transmission Date: 20120825
  Serious: Yes (Other)
  Sender: FDA-Public Use
  Company Number: DE-ROCHE-1064826

PATIENT
  Age: 74 Year
  Sex: Female

DRUGS (3)
  1. LUCENTIS [Suspect]
     Indication: RETINAL VEIN OCCLUSION
     Route: 050
     Dates: start: 20120419
  2. INSULIN [Concomitant]
  3. AZARGA [Concomitant]

REACTIONS (4)
  - EXOPHTHALMOS [None]
  - SWELLING FACE [None]
  - ERYTHEMA [None]
  - EYELID OEDEMA [None]
